FAERS Safety Report 6673374-9 (Version None)
Quarter: 2010Q2

REPORT INFORMATION
  Report Type: 
  Country: None (occurrence: None)
  Receive Date: 20100408
  Receipt Date: 20100325
  Transmission Date: 20101027
  Serious: Yes (Other)
  Sender: FDA-Public Use
  Company Number: PHEH2006US01251

PATIENT
  Sex: Female
  Weight: 81.632 kg

DRUGS (31)
  1. AREDIA [Suspect]
     Dosage: 90MG MONTHLY
     Route: 042
     Dates: start: 20010426
  2. ZOMETA [Suspect]
     Indication: MULTIPLE MYELOMA
     Dosage: UNK,UNK
     Route: 042
     Dates: start: 20010101, end: 20050603
  3. VIOXX [Suspect]
     Indication: RHEUMATOID ARTHRITIS
     Dosage: 50MG, UNK
     Dates: start: 20040101, end: 20040101
  4. MULTI-VITAMINS [Concomitant]
  5. QUININE [Concomitant]
  6. ELAVIL [Concomitant]
  7. PROTONIX [Concomitant]
     Dosage: UNK / DAILY
  8. CELEBREX [Concomitant]
     Dosage: UNK / 2 X DAILY
  9. AMBIEN [Concomitant]
     Dosage: UNK
  10. KEFLEX [Concomitant]
     Dosage: 500 MG, UNK
  11. AMOXICILLIN [Concomitant]
  12. PEN-VEE K [Concomitant]
  13. PLAQUENIL [Concomitant]
  14. REGLAN [Concomitant]
  15. AUGMENTIN '125' [Concomitant]
  16. CLINDAMYCIN [Concomitant]
  17. PERIOGARD [Concomitant]
  18. FENTANYL-100 [Concomitant]
  19. PROTONIX [Concomitant]
  20. NEXIUM [Concomitant]
  21. FLAGYL [Concomitant]
  22. BACTRIM [Concomitant]
  23. CIPRO [Concomitant]
  24. SKELAXIN [Concomitant]
  25. VITAMIN D [Concomitant]
  26. HYDROMORPHONE HCL [Concomitant]
  27. CEFAZOLIN SODIUM [Concomitant]
  28. NEURONTIN [Concomitant]
  29. RADIATION THERAPY [Concomitant]
  30. CHEMOTHERAPEUTICS NOS [Concomitant]
  31. PREMPRO [Concomitant]

REACTIONS (42)
  - ABSCESS ORAL [None]
  - ACQUIRED OESOPHAGEAL WEB [None]
  - ANTINUCLEAR ANTIBODY POSITIVE [None]
  - ARTHRALGIA [None]
  - BACK PAIN [None]
  - BONE DEBRIDEMENT [None]
  - BONE LESION [None]
  - BONE MARROW FAILURE [None]
  - CENTRAL VENOUS CATHETERISATION [None]
  - CLOSTRIDIUM DIFFICILE COLITIS [None]
  - DEBRIDEMENT [None]
  - DENTAL DISCOMFORT [None]
  - DYSPHAGIA [None]
  - ENDODONTIC PROCEDURE [None]
  - FAT TISSUE INCREASED [None]
  - FOOT FRACTURE [None]
  - HYPERBARIC OXYGEN THERAPY [None]
  - HYPOAESTHESIA [None]
  - INTERVERTEBRAL DISC PROTRUSION [None]
  - JOINT SPRAIN [None]
  - MOUTH ULCERATION [None]
  - MULTIPLE SCLEROSIS [None]
  - MUSCLE SPASMS [None]
  - MUSCULAR WEAKNESS [None]
  - MYELOMA RECURRENCE [None]
  - NECK PAIN [None]
  - NODULE [None]
  - OESOPHAGEAL DILATION PROCEDURE [None]
  - ORAL PUSTULE [None]
  - OSTEOMYELITIS [None]
  - OSTEONECROSIS [None]
  - PAIN IN EXTREMITY [None]
  - PAIN IN JAW [None]
  - RENAL FAILURE ACUTE [None]
  - RENAL FAILURE CHRONIC [None]
  - RHEUMATOID ARTHRITIS [None]
  - SPINAL CORD OEDEMA [None]
  - STAPHYLOCOCCAL INFECTION [None]
  - STOMATITIS [None]
  - SWELLING [None]
  - TEMPERATURE INTOLERANCE [None]
  - TOOTH EXTRACTION [None]
